FAERS Safety Report 9356550 (Version 1)
Quarter: 2013Q2

REPORT INFORMATION
  Report Type: Spontaneous
  Country: TN (occurrence: TN)
  Receive Date: 20130619
  Receipt Date: 20130619
  Transmission Date: 20140414
  Serious: Yes (Death, Hospitalization)
  Sender: FDA-Public Use
  Company Number: TN-MYLANLABS-2013S1012507

PATIENT
  Age: 25 Year
  Sex: Female

DRUGS (1)
  1. METHOTREXATE [Suspect]
     Indication: PSORIASIS
     Route: 030

REACTIONS (6)
  - Febrile neutropenia [Fatal]
  - Septic shock [Fatal]
  - Renal failure acute [Unknown]
  - Pancytopenia [Fatal]
  - Stomatitis [Unknown]
  - Mouth ulceration [Unknown]
